FAERS Safety Report 18034362 (Version 2)
Quarter: 2020Q3

REPORT INFORMATION
  Report Type: Spontaneous
  Country: IR (occurrence: IR)
  Receive Date: 20200716
  Receipt Date: 20200908
  Transmission Date: 20201103
  Serious: Yes (Other)
  Sender: FDA-Public Use
  Company Number: IR-SA-2020SA181327

PATIENT

DRUGS (3)
  1. PLAVIX [Suspect]
     Active Substance: CLOPIDOGREL BISULFATE
     Indication: ANGIOPLASTY
     Dosage: 1 DF, QD, APPROXIMATELY 1 YEAR AGO
     Route: 048
     Dates: end: 20200623
  2. PANTOPRAZOLE [Concomitant]
     Active Substance: PANTOPRAZOLE
     Indication: GASTROINTESTINAL DISORDER
     Dosage: 1 DF, QD (MORING), APPROXIMATELY 1 YEAR AGO
     Route: 048
  3. ASA [Concomitant]
     Active Substance: ASPIRIN
     Indication: ANGIOPLASTY
     Dosage: 1 DF, QD (NIGHT), APPROXIMATELY 1 YEAR AGO
     Route: 048

REACTIONS (5)
  - Dyspnoea [Recovered/Resolved]
  - Abdominal pain upper [Recovered/Resolved]
  - Dizziness [Recovered/Resolved]
  - Haemorrhage subcutaneous [Recovered/Resolved]
  - Nausea [Recovered/Resolved]
